FAERS Safety Report 9709874 (Version 2)
Quarter: 2014Q1

REPORT INFORMATION
  Report Type: Spontaneous
  Country: US (occurrence: US)
  Receive Date: 20131126
  Receipt Date: 20140129
  Transmission Date: 20141002
  Serious: No
  Sender: FDA-Public Use
  Company Number: US-PFIZER INC-2013332231

PATIENT
  Age: 62 Year
  Sex: Female
  Weight: 61.22 kg

DRUGS (13)
  1. ZITHROMAX [Suspect]
     Indication: UPPER RESPIRATORY TRACT INFECTION
     Dosage: UNK,1X/DAY
     Dates: start: 20131101, end: 201311
  2. ZITHROMAX [Suspect]
     Dosage: 2 TAB
     Route: 048
     Dates: start: 20131104, end: 20131104
  3. ZITHROMAX [Suspect]
     Dosage: UNK, 1X/DAY
     Dates: start: 20131105, end: 20131109
  4. PREDNISONE [Suspect]
     Indication: RASH GENERALISED
     Dosage: UNK
     Dates: start: 20131114
  5. PREDNISONE [Suspect]
     Indication: PRURITUS
  6. PREDNISONE [Suspect]
     Indication: BURNING SENSATION
  7. PREDNISONE [Suspect]
     Indication: DRY SKIN
  8. BENADRYL [Suspect]
     Indication: RASH GENERALISED
     Dosage: UNK
     Dates: start: 20131114
  9. BENADRYL [Suspect]
     Indication: PRURITUS
  10. BENADRYL [Suspect]
     Indication: BURNING SENSATION
  11. BENADRYL [Suspect]
     Indication: DRY SKIN
  12. BENICAR [Concomitant]
     Indication: HYPERTENSION
     Dosage: 20 MG, DAILY
  13. AMLODIPINE [Concomitant]
     Indication: HYPERTENSION
     Dosage: 5 MG, DAILY

REACTIONS (5)
  - Rash generalised [Recovering/Resolving]
  - Pruritus [Not Recovered/Not Resolved]
  - Burning sensation [Not Recovered/Not Resolved]
  - Dry skin [Not Recovered/Not Resolved]
  - Drug ineffective [Unknown]
